FAERS Safety Report 14558054 (Version 1)
Quarter: 2018Q1

REPORT INFORMATION
  Report Type: Spontaneous
  Country: DE (occurrence: DE)
  Receive Date: 20180221
  Receipt Date: 20180221
  Transmission Date: 20180509
  Serious: Yes (Hospitalization, Other)
  Sender: FDA-Public Use
  Company Number: DE-IMPAX LABORATORIES, INC-2018-IPXL-00447

PATIENT
  Age: 21 Year
  Sex: Female

DRUGS (3)
  1. FLUDROCORTISONE ACETATE. [Suspect]
     Active Substance: FLUDROCORTISONE ACETATE
     Indication: ADDISON^S DISEASE
     Dosage: 0.05 MG, DAILY
     Route: 065
  2. HYDROCORTISONE. [Suspect]
     Active Substance: HYDROCORTISONE
     Indication: ADDISON^S DISEASE
     Dosage: 20 MG, DAILY
     Route: 065
  3. HYDROCORTISONE. [Suspect]
     Active Substance: HYDROCORTISONE
     Dosage: TEMPORARY INCREASE IN DOSE, UNK
     Route: 065

REACTIONS (4)
  - Nausea [Recovering/Resolving]
  - Depression [Recovering/Resolving]
  - Limbic encephalitis [Recovering/Resolving]
  - Anti-GAD antibody positive [Unknown]
